FAERS Safety Report 23061290 (Version 2)
Quarter: 2023Q4

REPORT INFORMATION
  Report Type: Other
  Country: US (occurrence: US)
  Receive Date: 20231013
  Receipt Date: 20231116
  Transmission Date: 20240110
  Serious: No
  Sender: FDA-Public Use
  Company Number: US-BEIGENE-BGN-2023-011385

PATIENT

DRUGS (3)
  1. BRUKINSA [Suspect]
     Active Substance: ZANUBRUTINIB
     Indication: Product used for unknown indication
     Dosage: 320 MILLIGRAM
  2. OPDIVO [Concomitant]
     Active Substance: NIVOLUMAB
  3. IPILIMUMAB [Concomitant]
     Active Substance: IPILIMUMAB

REACTIONS (1)
  - No adverse event [Unknown]
